FAERS Safety Report 16114955 (Version 1)
Quarter: 2019Q1

REPORT INFORMATION
  Report Type: Spontaneous
  Country: FR (occurrence: FR)
  Receive Date: 20190325
  Receipt Date: 20190325
  Transmission Date: 20190418
  Serious: Yes (Hospitalization)
  Sender: FDA-Public Use
  Company Number: FR-ROCHE-2286437

PATIENT
  Age: 74 Year
  Sex: Male
  Weight: 81 kg

DRUGS (9)
  1. MOPRAL [Concomitant]
     Active Substance: OMEPRAZOLE
     Route: 065
  2. ZANEXTRA [Concomitant]
     Active Substance: ENALAPRIL MALEATE\LERCANIDIPINE HYDROCHLORIDE
     Route: 065
  3. ULTIBRO BREEZHALER [Concomitant]
     Active Substance: GLYCOPYRRONIUM\INDACATEROL
     Route: 065
  4. VALIUM [Suspect]
     Active Substance: DIAZEPAM
     Indication: ANXIETY
     Route: 048
     Dates: start: 20181229, end: 20190123
  5. EUPRESSYL [Concomitant]
     Active Substance: URAPIDIL
     Route: 065
  6. DEXERYL (FRANCE) [Concomitant]
     Active Substance: GLYCERIN\MINERAL OIL\PETROLATUM
     Route: 065
  7. TRANSULOSE [Concomitant]
     Active Substance: LACTULOSE\MINERAL OIL\PARAFFIN
     Route: 065
  8. VENTOLINE [Concomitant]
     Active Substance: ALBUTEROL
     Route: 065
  9. DOLIPRANE [Concomitant]
     Active Substance: ACETAMINOPHEN
     Route: 065

REACTIONS (2)
  - Disturbance in attention [Recovering/Resolving]
  - Coma [Recovering/Resolving]

NARRATIVE: CASE EVENT DATE: 20190123
